FAERS Safety Report 25048902 (Version 2)
Quarter: 2025Q1

REPORT INFORMATION
  Report Type: Spontaneous
  Country: AU (occurrence: AU)
  Receive Date: 20250307
  Receipt Date: 20250318
  Transmission Date: 20250409
  Serious: Yes (Life-Threatening, Other)
  Sender: SANOFI AVENTIS
  Company Number: AU-SA-2025SA065188

PATIENT
  Age: 50 Year
  Sex: Male

DRUGS (11)
  1. BISOPROLOL FUMARATE [Suspect]
     Active Substance: BISOPROLOL FUMARATE
     Indication: Dilated cardiomyopathy
  2. BISOPROLOL FUMARATE [Suspect]
     Active Substance: BISOPROLOL FUMARATE
  3. IRBESARTAN [Suspect]
     Active Substance: IRBESARTAN
     Indication: Hypertension
  4. RAMIPRIL [Suspect]
     Active Substance: RAMIPRIL
     Indication: Dilated cardiomyopathy
  5. RAMIPRIL [Suspect]
     Active Substance: RAMIPRIL
     Dosage: 10MG, 1 DAY
  6. SACUBITRIL\VALSARTAN [Suspect]
     Active Substance: SACUBITRIL\VALSARTAN
  7. SACUBITRIL\VALSARTAN [Suspect]
     Active Substance: SACUBITRIL\VALSARTAN
  8. SACUBITRIL\VALSARTAN [Suspect]
     Active Substance: SACUBITRIL\VALSARTAN
     Dosage: UNK, QD
  9. SPIRONOLACTONE [Suspect]
     Active Substance: SPIRONOLACTONE
     Indication: Product used for unknown indication
  10. IVABRADINE [Suspect]
     Active Substance: IVABRADINE
     Indication: Product used for unknown indication
  11. DAPAGLIFLOZIN PROPANEDIOL [Suspect]
     Active Substance: DAPAGLIFLOZIN PROPANEDIOL
     Indication: Product used for unknown indication

REACTIONS (20)
  - Mitral valve incompetence [Unknown]
  - Cardiomyopathy [Unknown]
  - Chronic kidney disease [Unknown]
  - Atrial fibrillation [Recovering/Resolving]
  - Blood creatinine increased [Unknown]
  - Blood pressure decreased [Unknown]
  - Body mass index increased [Unknown]
  - Bundle branch block left [Unknown]
  - Dyspnoea paroxysmal nocturnal [Recovering/Resolving]
  - Echocardiogram abnormal [Unknown]
  - Ejection fraction decreased [Unknown]
  - Histamine level increased [Unknown]
  - Hypervolaemia [Unknown]
  - Limb discomfort [Unknown]
  - Oedema peripheral [Recovering/Resolving]
  - Orthopnoea [Recovering/Resolving]
  - Palpitations [Unknown]
  - Polyuria [Unknown]
  - Weight decreased [Unknown]
  - Dyspnoea [Unknown]
